FAERS Safety Report 8312144-2 (Version None)
Quarter: 2012Q2

REPORT INFORMATION
  Report Type: 
  Country: None (occurrence: None)
  Receive Date: 20120425
  Receipt Date: 20110808
  Transmission Date: 20120825
  Serious: Yes (Other)
  Sender: FDA-Public Use
  Company Number: US-TEVA-US017876

PATIENT
  Age: 40 Year
  Sex: Female

DRUGS (1)
  1. PROVIGIL [Suspect]
     Route: 048

REACTIONS (1)
  - ASTHMA [None]
